FAERS Safety Report 6442266-2 (Version None)
Quarter: 2009Q4

REPORT INFORMATION
  Report Type: 
  Country: None (occurrence: None)
  Receive Date: 20091112
  Receipt Date: 20090720
  Transmission Date: 20100525
  Serious: Yes (Other)
  Sender: FDA-Public Use
  Company Number: ADR11052009

PATIENT
  Age: 10 Year
  Sex: Female

DRUGS (2)
  1. RISPERIDONE [Suspect]
     Dosage: 0.25MG, ORAL
     Route: 048
  2. STRATTERA [Concomitant]

REACTIONS (6)
  - ATAXIA [None]
  - DRUG INEFFECTIVE [None]
  - DRUG INTERACTION [None]
  - POSTURE ABNORMAL [None]
  - SPEECH DISORDER [None]
  - SYNCOPE [None]
